FAERS Safety Report 12175081 (Version 1)
Quarter: 2016Q1

REPORT INFORMATION
  Report Type: Spontaneous
  Country: US (occurrence: US)
  Receive Date: 20160314
  Receipt Date: 20160314
  Transmission Date: 20160526
  Serious: No
  Sender: FDA-Public Use
  Company Number: US-009507513-1603USA002538

PATIENT
  Age: 18 Year
  Sex: Female
  Weight: 54.42 kg

DRUGS (5)
  1. NEXPLANON [Suspect]
     Active Substance: ETONOGESTREL
     Indication: CONTRACEPTION
     Dosage: 1 ROD UP TO 3 YEARS; IMPLANT LEFT ARM
     Route: 059
     Dates: start: 20150511
  2. BENZTROPINE MESYLATE. [Concomitant]
     Active Substance: BENZTROPINE MESYLATE
     Dosage: UNK, 2X
     Route: 048
  3. LISINOPRIL. [Concomitant]
     Active Substance: LISINOPRIL
     Dosage: UNK, 1X
     Route: 048
  4. RISPERDAL [Concomitant]
     Active Substance: RISPERIDONE
     Dosage: UNK, X2
  5. LITHIUM. [Concomitant]
     Active Substance: LITHIUM
     Dosage: 300 MG, 3X DAILY

REACTIONS (3)
  - Menstruation delayed [Unknown]
  - Vaginal haemorrhage [Unknown]
  - Menorrhagia [Unknown]

NARRATIVE: CASE EVENT DATE: 20150511
